FAERS Safety Report 5402558-2 (Version None)
Quarter: 2007Q3

REPORT INFORMATION
  Report Type: 
  Country: None (occurrence: None)
  Receive Date: 20070801
  Receipt Date: 20070102
  Transmission Date: 20080115
  Serious: No
  Sender: FDA-Public Use
  Company Number: A0630952A

PATIENT
  Age: 59 Year
  Sex: Female

DRUGS (4)
  1. IMITREX [Suspect]
     Indication: MIGRAINE
     Dosage: 100MG AS REQUIRED
     Route: 048
  2. PREVACID [Concomitant]
  3. PHOS-NAK [Concomitant]
  4. VESICARE [Concomitant]

REACTIONS (1)
  - DRUG INEFFECTIVE [None]
